FAERS Safety Report 16540521 (Version 1)
Quarter: 2019Q3

REPORT INFORMATION
  Report Type: Spontaneous
  Country: US (occurrence: US)
  Receive Date: 20190707
  Receipt Date: 20190707
  Transmission Date: 20191004
  Serious: Yes (Disabling)
  Sender: FDA-Public Use
  Company Number: None

PATIENT
  Age: 46 Year
  Sex: Female
  Weight: 54 kg

DRUGS (2)
  1. MIRENA [Suspect]
     Active Substance: LEVONORGESTREL
     Indication: ECTOPIC PREGNANCY
     Dosage: ?          QUANTITY:1 IUD;?
     Route: 067
     Dates: start: 20161101
  2. MIRENA [Suspect]
     Active Substance: LEVONORGESTREL
     Indication: HAEMORRHAGE
     Dosage: ?          QUANTITY:1 IUD;?
     Route: 067
     Dates: start: 20161101

REACTIONS (3)
  - Complication of device insertion [None]
  - Muscle spasms [None]
  - Procedural pain [None]

NARRATIVE: CASE EVENT DATE: 20161101
